FAERS Safety Report 24071936 (Version 1)
Quarter: 2024Q3

REPORT INFORMATION
  Report Type: Spontaneous
  Country: US (occurrence: None)
  Receive Date: 20240709
  Receipt Date: 20240709
  Transmission Date: 20241017
  Serious: Yes (Other)
  Sender: Public
  Company Number: None

PATIENT
  Age: 79 Year
  Sex: Female
  Weight: 34.93 kg

DRUGS (12)
  1. CINACALCET [Suspect]
     Active Substance: CINACALCET
     Indication: Parathyroid disorder
     Dosage: OTHER QUANTITY : 1 PILL 3X A WEEK;?FREQUENCY : WEEKLY;?
     Route: 048
     Dates: start: 202405, end: 202405
  2. LEVOCYL [Concomitant]
  3. FOSRENOL [Concomitant]
     Active Substance: LANTHANUM CARBONATE
  4. CLONIDINE [Concomitant]
     Active Substance: CLONIDINE
  5. MIDODRINE [Concomitant]
     Active Substance: MIDODRINE
  6. CINACALCET/SENSIPAN [Concomitant]
  7. TUMS [Concomitant]
  8. TYLENOL [Concomitant]
     Active Substance: ACETAMINOPHEN
  9. GAS-X [Concomitant]
     Active Substance: DIMETHICONE
  10. PEARLS ACIDOPHILIS [Concomitant]
  11. PROBIOTICS NOS [Concomitant]
     Active Substance: PROBIOTICS NOS
  12. VITAMIN D [Concomitant]
     Active Substance: VITAMIN D NOS

REACTIONS (3)
  - Dyspnoea [None]
  - Headache [None]
  - Abdominal pain upper [None]

NARRATIVE: CASE EVENT DATE: 20240501
